FAERS Safety Report 5382898-6 (Version None)
Quarter: 2007Q3

REPORT INFORMATION
  Report Type: 
  Country: None (occurrence: None)
  Receive Date: 20070705
  Receipt Date: 20070705
  Transmission Date: 20080115
  Serious: Yes (Life-Threatening)
  Sender: FDA-Public Use
  Company Number: None

PATIENT
  Age: 53 Year
  Sex: Male

DRUGS (1)
  1. IOVERSOL [Suspect]
     Indication: DIAGNOSTIC PROCEDURE
     Dosage: 120 ONCE IV
     Route: 042
     Dates: start: 20070511, end: 20070511

REACTIONS (4)
  - CONTRAST MEDIA REACTION [None]
  - COUGH [None]
  - DYSPNOEA [None]
  - WHEEZING [None]
